FAERS Safety Report 6231468-6 (Version None)
Quarter: 2009Q2

REPORT INFORMATION
  Report Type: 
  Country: None (occurrence: None)
  Receive Date: 20090616
  Receipt Date: 20090608
  Transmission Date: 20091009
  Serious: Yes (Hospitalization)
  Sender: FDA-Public Use
  Company Number: A0730965A

PATIENT
  Age: 49 Year
  Sex: Male
  Weight: 75 kg

DRUGS (4)
  1. AVANDIA [Suspect]
     Route: 048
  2. GLUCOVANCE [Concomitant]
  3. ZOCOR [Concomitant]
  4. ACCUPRIL [Concomitant]

REACTIONS (2)
  - ACUTE MYOCARDIAL INFARCTION [None]
  - CARDIAC FAILURE CONGESTIVE [None]
